FAERS Safety Report 9759175 (Version 1)
Quarter: 2013Q4

REPORT INFORMATION
  Report Type: Spontaneous
  Country: US (occurrence: US)
  Receive Date: 20131216
  Receipt Date: 20131216
  Transmission Date: 20140711
  Serious: Yes (Life-Threatening, Hospitalization)
  Sender: FDA-Public Use
  Company Number: US-B.I. PHARMACEUTICALS,INC./RIDGEFIELD-2013-BI-41876BP

PATIENT
  Age: 85 Year
  Sex: Female

DRUGS (2)
  1. CATAPRES TTS [Suspect]
     Indication: HYPERTENSION
     Dosage: FORMULATION: PATCHES, STRENGTH: 7.5 MG (0.3 MG / DAY);
     Route: 061
     Dates: start: 201312, end: 201312
  2. CATAPRES TTS [Suspect]
     Dosage: FORMULATION: PATCHES, STRENGTH: 7.5 MG (0.3 MG / DAY);
     Route: 061
     Dates: start: 201312, end: 20131209

REACTIONS (3)
  - Heart rate increased [Recovered/Resolved]
  - Heart rate increased [Recovered/Resolved]
  - Troponin increased [Not Recovered/Not Resolved]
